FAERS Safety Report 25282779 (Version 1)
Quarter: 2025Q2

REPORT INFORMATION
  Report Type: Spontaneous
  Country: US (occurrence: None)
  Receive Date: 20250508
  Receipt Date: 20250508
  Transmission Date: 20250717
  Serious: Yes (Hospitalization)
  Sender: FDA-CTU
  Company Number: None

PATIENT
  Age: 88 Year
  Sex: Male
  Weight: 88.6 kg

DRUGS (1)
  1. DARATUMUMAB [Suspect]
     Active Substance: DARATUMUMAB
     Dates: end: 20250408

REACTIONS (5)
  - Myalgia [None]
  - Pyrexia [None]
  - Dizziness [None]
  - Viral infection [None]
  - Viral infection [None]

NARRATIVE: CASE EVENT DATE: 20250501
